FAERS Safety Report 5907372-7 (Version None)
Quarter: 2008Q4

REPORT INFORMATION
  Report Type: 
  Country: None (occurrence: None)
  Receive Date: 20081003
  Receipt Date: 20080929
  Transmission Date: 20090506
  Serious: Yes (Life-Threatening)
  Sender: FDA-Public Use
  Company Number: JP-ASTRAZENECA-2008AP07583

PATIENT
  Age: 80 Year
  Sex: Male

DRUGS (2)
  1. OMEPRAL TABLETS 20 [Suspect]
     Indication: REFLUX OESOPHAGITIS
     Route: 048
     Dates: start: 20080901
  2. PLAVIX [Concomitant]
     Route: 048
     Dates: start: 20080424

REACTIONS (1)
  - THROMBOSIS [None]
